FAERS Safety Report 13016886 (Version 1)
Quarter: 2016Q4

REPORT INFORMATION
  Report Type: Spontaneous
  Country: US (occurrence: US)
  Receive Date: 20161209
  Receipt Date: 20161209
  Transmission Date: 20170207
  Serious: Yes (Other)
  Sender: FDA-Public Use
  Company Number: None

PATIENT
  Age: 78 Year
  Sex: Female
  Weight: 63.9 kg

DRUGS (10)
  1. MULTI VITAMIN [Concomitant]
     Active Substance: VITAMINS
  2. SCHIFF MOVE FREE [Concomitant]
     Active Substance: CHONDROITIN SULFATE A\GLUCOSAMINE
  3. FLEXIMIN [Concomitant]
  4. VITAMIN D3 [Concomitant]
     Active Substance: CHOLECALCIFEROL
  5. TYLENOL [Concomitant]
     Active Substance: ACETAMINOPHEN
  6. LANTANIPROST [Suspect]
     Active Substance: LATANOPROST
  7. CALCIUM [Concomitant]
     Active Substance: CALCIUM
  8. AZOPT [Suspect]
     Active Substance: BRINZOLAMIDE
  9. FISH OIL [Concomitant]
     Active Substance: FISH OIL
  10. LOSARTAN 25 MG COSTCO [Suspect]
     Active Substance: LOSARTAN
     Indication: HYPERTENSION
     Dosage: ?          QUANTITY:1 1/2 PILL;?
     Route: 048

REACTIONS (3)
  - Alopecia [None]
  - Pain of skin [None]
  - Burning sensation [None]
